FAERS Safety Report 12278024 (Version 2)
Quarter: 2016Q2

REPORT INFORMATION
  Report Type: Report from Study
  Country: BR (occurrence: BR)
  Receive Date: 20160418
  Receipt Date: 20160421
  Transmission Date: 20160815
  Serious: Yes (Other)
  Sender: FDA-Public Use
  Company Number: BR-JNJFOC-20160408641

PATIENT
  Sex: Female

DRUGS (2)
  1. REMICADE [Suspect]
     Active Substance: INFLIXIMAB
     Indication: CROHN^S DISEASE
     Route: 042
     Dates: end: 2015
  2. BENICAR [Concomitant]
     Active Substance: OLMESARTAN MEDOXOMIL
     Route: 065

REACTIONS (8)
  - Palpitations [Unknown]
  - Dyspnoea [Unknown]
  - Constipation [Unknown]
  - Pain [Unknown]
  - Infusion related reaction [Unknown]
  - Haemorrhage [Unknown]
  - Blood pressure increased [Unknown]
  - Infarction [Unknown]
